FAERS Safety Report 8522550 (Version 6)
Quarter: 2012Q4

REPORT INFORMATION
  Report Type: 
  Country: JP (occurrence: JP)
  Receive Date: 20120419
  Receipt Date: 20121024
  Transmission Date: 20130627
  Serious: No
  Sender: FDA-Public Use
  Company Number: JP-PFIZER INC-2012092679

PATIENT
  Age: 1 Day
  Sex: Female
  Weight: .92 kg

DRUGS (4)
  1. NOVASTAN [Suspect]
     Indication: HEPARIN-INDUCED THROMBOCYTOPENIA
     Dosage: 20 mg, 1x/day
     Route: 064
  2. NOVASTAN [Suspect]
     Indication: DIALYSIS
  3. TANKARU [Concomitant]
     Indication: DIALYSIS
     Dosage: 1000 mg, 3x/day
     Route: 064
  4. EPOGIN [Concomitant]
     Indication: NEPHROGENIC ANAEMIA
     Dosage: 750 DF, 1x/day
     Route: 064

REACTIONS (1)
  - Maternal exposure timing unspecified [Unknown]
